FAERS Safety Report 14530610 (Version 1)
Quarter: 2018Q1

REPORT INFORMATION
  Report Type: Spontaneous
  Country: US (occurrence: US)
  Receive Date: 20180214
  Receipt Date: 20180214
  Transmission Date: 20180509
  Serious: No
  Sender: FDA-Public Use
  Company Number: US-IPSEN BIOPHARMACEUTICALS, INC.-2017-00285

PATIENT
  Age: 70 Year
  Sex: Female

DRUGS (1)
  1. DYSPORT [Suspect]
     Active Substance: ABOBOTULINUMTOXINA
     Indication: TORTICOLLIS
     Dosage: 600 UNITS
     Route: 065
     Dates: start: 201612, end: 201612

REACTIONS (5)
  - Wheezing [Unknown]
  - Eyelid ptosis [Unknown]
  - Cough [Unknown]
  - Secretion discharge [Unknown]
  - Diplopia [Unknown]
